FAERS Safety Report 4898788-9 (Version None)
Quarter: 2006Q1

REPORT INFORMATION
  Report Type: 
  Country: None (occurrence: None)
  Receive Date: 20060127
  Receipt Date: 20060117
  Transmission Date: 20060701
  Serious: Yes (Hospitalization, Other)
  Sender: FDA-Public Use
  Company Number: EM2005-0597

PATIENT
  Age: 62 Year
  Sex: Female
  Weight: 42.6 kg

DRUGS (3)
  1. TOBI; CHIRON CORPORATION (TOB [Suspect]
     Indication: BRONCHIECTASIS
     Dosage: 300 MG,
     Dates: start: 20051113, end: 20051208
  2. PROTONIX [Concomitant]
  3. ACTIGALL [Concomitant]

REACTIONS (16)
  - ASTHENIA [None]
  - CANDIDIASIS [None]
  - COUGH [None]
  - DEHYDRATION [None]
  - DYSGEUSIA [None]
  - DYSPEPSIA [None]
  - DYSPHONIA [None]
  - ERUCTATION [None]
  - FATIGUE [None]
  - FLATULENCE [None]
  - LARYNGITIS [None]
  - OROPHARYNGEAL SPASM [None]
  - PRODUCTIVE COUGH [None]
  - SPUTUM DISCOLOURED [None]
  - TINNITUS [None]
  - WEIGHT DECREASED [None]
